FAERS Safety Report 7749181-2 (Version None)
Quarter: 2011Q3

REPORT INFORMATION
  Report Type: 
  Country: None (occurrence: None)
  Receive Date: 20110908
  Receipt Date: 20110902
  Transmission Date: 20111222
  Serious: Yes (Life-Threatening, Other)
  Sender: FDA-Public Use
  Company Number: 2011SP039089

PATIENT
  Age: 62 Year
  Sex: Female
  Weight: 54 kg

DRUGS (4)
  1. NOXAFIL [Suspect]
     Indication: ANTIFUNGAL PROPHYLAXIS
     Dosage: 200 MG; PO
     Route: 048
     Dates: start: 20101119, end: 20101207
  2. LOPERAMIDE HCL [Concomitant]
  3. PIPERACILLIN AND TAZOBACTAM [Concomitant]
  4. IMOCLONE [Concomitant]

REACTIONS (6)
  - HYPOMAGNESAEMIA [None]
  - CARDIAC ARREST [None]
  - HYPOKALAEMIA [None]
  - ELECTROCARDIOGRAM CHANGE [None]
  - ELECTROCARDIOGRAM QT PROLONGED [None]
  - VENTRICULAR FLUTTER [None]
